FAERS Safety Report 7526822-6 (Version None)
Quarter: 2011Q2

REPORT INFORMATION
  Report Type: 
  Country: None (occurrence: None)
  Receive Date: 20110606
  Receipt Date: 20110503
  Transmission Date: 20111010
  Serious: No
  Sender: FDA-Public Use
  Company Number: US-BAYER-2011-039744

PATIENT
  Age: 70 Year
  Sex: Female

DRUGS (2)
  1. ALEVE (CAPLET) [Suspect]
     Indication: EAR PAIN
     Dosage: 220 UNK, BID, BOTTLE COUNT 200S
  2. ALEVE (CAPLET) [Suspect]
     Indication: ARTHRITIS
     Dosage: 220 MG, QD, BOTTLE COUNT 200S
     Route: 048
     Dates: start: 20110201

REACTIONS (1)
  - NO ADVERSE EVENT [None]
